FAERS Safety Report 4273072-5 (Version None)
Quarter: 2004Q1

REPORT INFORMATION
  Report Type: 
  Country: None (occurrence: None)
  Receive Date: 20040114
  Receipt Date: 20040108
  Transmission Date: 20041129
  Serious: Yes (Death, Life-Threatening)
  Sender: FDA-Public Use
  Company Number: ITWYE478422DEC03

PATIENT
  Age: 39 Year
  Sex: Female

DRUGS (5)
  1. GEMTUZUMAB OZOGAMICIN (GEMTUZUMAB OZOGAMICIN, INJECTION) [Suspect]
     Indication: ACUTE PROMYELOCYTIC LEUKAEMIA
  2. ARACYTIN (CYTARABINE, ,  0) [Suspect]
  3. IDARUBICIN (IDARUBICIN,  ,  0) [Concomitant]
  4. TIOGUANINE (TIOGUANINE, , 0) [Suspect]
  5. TRENINOIN (TRETINOIN, , 0) [Suspect]

REACTIONS (4)
  - DYSPNOEA [None]
  - HYPOTENSION [None]
  - INTESTINAL PERFORATION [None]
  - SEPTIC SHOCK [None]
